FAERS Safety Report 16192237 (Version 2)
Quarter: 2019Q2

REPORT INFORMATION
  Report Type: Spontaneous
  Country: DE (occurrence: DE)
  Receive Date: 20190412
  Receipt Date: 20190422
  Transmission Date: 20190711
  Serious: Yes (Other)
  Sender: FDA-Public Use
  Company Number: DE-B.I. PHARMACEUTICALS,INC./RIDGEFIELD-2019-12-001198

PATIENT
  Age: 83 Year
  Sex: Male

DRUGS (2)
  1. SPIRIVA RESPIMAT [Suspect]
     Active Substance: TIOTROPIUM BROMIDE
     Indication: CHRONIC OBSTRUCTIVE PULMONARY DISEASE
     Route: 065
  2. BELOC ZOK [Concomitant]
     Active Substance: METOPROLOL SUCCINATE
     Indication: PRODUCT USED FOR UNKNOWN INDICATION
     Route: 065

REACTIONS (11)
  - Angina pectoris [Unknown]
  - Pain in extremity [Unknown]
  - Oedema peripheral [Unknown]
  - Hypertension [Unknown]
  - Nocturia [Unknown]
  - Urinary hesitation [Unknown]
  - Productive cough [Unknown]
  - Dry mouth [Unknown]
  - Dysphonia [Unknown]
  - Dyspnoea [Unknown]
  - Chest discomfort [Unknown]
